FAERS Safety Report 20320543 (Version 1)
Quarter: 2022Q1

REPORT INFORMATION
  Report Type: Spontaneous
  Country: US (occurrence: None)
  Receive Date: 20220111
  Receipt Date: 20220111
  Transmission Date: 20220423
  Serious: Yes (Hospitalization, Other)
  Sender: FDA-Public Use
  Company Number: US-Hikma Pharmaceuticals USA Inc.-US-H14001-21-05697

PATIENT
  Age: 77 Year
  Sex: Female

DRUGS (5)
  1. DIPHENHYDRAMINE [Suspect]
     Active Substance: DIPHENHYDRAMINE
     Indication: Rash morbilliform
     Route: 065
  2. ALPELISIB [Concomitant]
     Active Substance: ALPELISIB
     Indication: PIK3CA-activated mutation
     Route: 065
  3. ALPELISIB [Concomitant]
     Active Substance: ALPELISIB
     Route: 065
  4. FULVESTRANT [Concomitant]
     Active Substance: FULVESTRANT
     Indication: PIK3CA-activated mutation
     Dosage: UNKNOWN
     Route: 065
  5. FULVESTRANT [Concomitant]
     Active Substance: FULVESTRANT
     Indication: Breast cancer metastatic

REACTIONS (2)
  - Drug ineffective [Recovered/Resolved]
  - Drug eruption [Recovered/Resolved]
